FAERS Safety Report 12900587 (Version 2)
Quarter: 2016Q4

REPORT INFORMATION
  Report Type: Spontaneous
  Country: US (occurrence: US)
  Receive Date: 20161101
  Receipt Date: 20161108
  Transmission Date: 20170207
  Serious: Yes (Hospitalization)
  Sender: FDA-Public Use
  Company Number: US-RELYPSA-RLY2016003212

PATIENT
  Sex: Male

DRUGS (18)
  1. KIONEX [Concomitant]
     Active Substance: SODIUM POLYSTYRENE SULFONATE
  2. PROBENECID. [Concomitant]
     Active Substance: PROBENECID
  3. GLIPIZIDE. [Concomitant]
     Active Substance: GLIPIZIDE
  4. ASPIRIN. [Concomitant]
     Active Substance: ASPIRIN
  5. AMLODIPINE BESYLATE. [Concomitant]
     Active Substance: AMLODIPINE BESYLATE
  6. MIRALAX [Concomitant]
     Active Substance: POLYETHYLENE GLYCOL 3350
  7. WARFARIN SODIUM. [Concomitant]
     Active Substance: WARFARIN SODIUM
  8. VELTASSA [Suspect]
     Active Substance: PATIROMER
     Indication: HYPERKALAEMIA
     Dosage: 8.4 G, QD
     Route: 048
     Dates: start: 20160310, end: 2016
  9. HYDROCODONE/ACETAMINOPHEN [Concomitant]
     Active Substance: ACETAMINOPHEN\HYDROCODONE
  10. ALLOPURINOL. [Concomitant]
     Active Substance: ALLOPURINOL
  11. PRILOSEC [Concomitant]
     Active Substance: OMEPRAZOLE MAGNESIUM
  12. LASIX [Concomitant]
     Active Substance: FUROSEMIDE
  13. METOLAZONE. [Concomitant]
     Active Substance: METOLAZONE
  14. PRAVASTATIN SODIUM. [Concomitant]
     Active Substance: PRAVASTATIN SODIUM
  15. IRON [Concomitant]
     Active Substance: IRON
  16. CALCITRIOL. [Concomitant]
     Active Substance: CALCITRIOL
  17. TYLENOL [Concomitant]
     Active Substance: ACETAMINOPHEN
  18. ATENOLOL. [Concomitant]
     Active Substance: ATENOLOL

REACTIONS (2)
  - Renal disorder [Unknown]
  - Cardiac disorder [Unknown]

NARRATIVE: CASE EVENT DATE: 2016
